FAERS Safety Report 25450055 (Version 2)
Quarter: 2025Q2

REPORT INFORMATION
  Report Type: Report from Study
  Country: US (occurrence: US)
  Receive Date: 20250618
  Receipt Date: 20250623
  Transmission Date: 20250716
  Serious: Yes (Life-Threatening, Hospitalization)
  Sender: KARYOPHARM THERAPEUTICS
  Company Number: US-KARYOPHARM-2025KPT100379

PATIENT
  Age: 62 Year
  Sex: Male
  Weight: 85.5 kg

DRUGS (1)
  1. SELINEXOR [Suspect]
     Active Substance: SELINEXOR
     Indication: Glioblastoma
     Route: 048
     Dates: start: 20250324, end: 20250612

REACTIONS (1)
  - Acute respiratory failure [Recovered/Resolved with Sequelae]

NARRATIVE: CASE EVENT DATE: 20250611
